FAERS Safety Report 13631867 (Version 1)
Quarter: 2017Q2

REPORT INFORMATION
  Report Type: Spontaneous
  Country: FR (occurrence: FR)
  Receive Date: 20170608
  Receipt Date: 20170608
  Transmission Date: 20170830
  Serious: Yes (Hospitalization)
  Sender: FDA-Public Use
  Company Number: FR-LUNDBECK-DKLU2032515

PATIENT
  Age: 32 Year
  Sex: Male

DRUGS (6)
  1. BACLOFEN. [Suspect]
     Active Substance: BACLOFEN
     Indication: SLEEP DISORDER
  2. BACLOFEN. [Suspect]
     Active Substance: BACLOFEN
     Indication: ANXIETY
     Route: 048
  3. THERALENE [Suspect]
     Active Substance: TRIMEPRAZINE
     Indication: ANXIETY
     Route: 048
  4. URBANYL [Suspect]
     Active Substance: CLOBAZAM
     Indication: ANXIETY
     Route: 048
  5. URBANYL [Suspect]
     Active Substance: CLOBAZAM
     Indication: SLEEP DISORDER
     Route: 048
  6. THERALENE [Suspect]
     Active Substance: TRIMEPRAZINE
     Indication: SLEEP DISORDER

REACTIONS (1)
  - Drug use disorder [Unknown]
